FAERS Safety Report 5900397-7 (Version None)
Quarter: 2008Q3

REPORT INFORMATION
  Report Type: 
  Country: None (occurrence: None)
  Receive Date: 20080926
  Receipt Date: 20080922
  Transmission Date: 20090109
  Serious: No
  Sender: FDA-Public Use
  Company Number: FR-PFIZER INC-2007100053

PATIENT
  Sex: Female
  Weight: 52 kg

DRUGS (1)
  1. TAHOR [Suspect]
     Indication: HYPERCHOLESTEROLAEMIA
     Dates: start: 20071021

REACTIONS (7)
  - ALOPECIA [None]
  - BACK PAIN [None]
  - ECZEMA [None]
  - EYELID DISORDER [None]
  - MADAROSIS [None]
  - MUSCLE RUPTURE [None]
  - MYALGIA [None]
